FAERS Safety Report 8187349-4 (Version None)
Quarter: 2012Q1

REPORT INFORMATION
  Report Type: 
  Country: None (occurrence: None)
  Receive Date: 20120306
  Receipt Date: 20120227
  Transmission Date: 20120608
  Serious: Yes (Other)
  Sender: FDA-Public Use
  Company Number: US-JNJFOC-20120201542

PATIENT
  Sex: Female
  Weight: 87.54 kg

DRUGS (6)
  1. TOPAMAX [Suspect]
     Indication: NEURALGIA
     Dosage: 50 MG THRICE A DAY
     Route: 048
     Dates: start: 20101108
  2. VALIUM [Concomitant]
     Indication: MUSCLE SPASMS
     Dosage: 5 MG THRICE IN A DAY AS NECESSARY
     Route: 065
     Dates: start: 20101001
  3. EFFEXOR XR [Concomitant]
     Route: 065
  4. LYRICA [Concomitant]
     Indication: NEURALGIA
     Dosage: TWICE TO  THRICE A DAY
     Route: 065
     Dates: start: 20080101
  5. HYDROCODONE BITARTRATE [Concomitant]
     Indication: BREAKTHROUGH PAIN
     Dosage: 7.5/325 TWICE TO THRICE A DAY
     Route: 065
     Dates: start: 20111228
  6. NUCYNTA ER [Suspect]
     Indication: PAIN
     Dosage: TWICE DAILY
     Route: 048
     Dates: start: 20120114, end: 20120117

REACTIONS (5)
  - DYSPHEMIA [None]
  - TINNITUS [None]
  - CONFUSIONAL STATE [None]
  - APHASIA [None]
  - TREMOR [None]
